FAERS Safety Report 5247251-4 (Version None)
Quarter: 2007Q1

REPORT INFORMATION
  Report Type: 
  Country: None (occurrence: None)
  Receive Date: 20070227
  Receipt Date: 20070213
  Transmission Date: 20070707
  Serious: Yes (Hospitalization)
  Sender: FDA-Public Use
  Company Number: PHHO2007CA03218

PATIENT
  Age: 57 Year
  Sex: Male
  Weight: 77.6 kg

DRUGS (8)
  1. CYCLOSPORINE [Suspect]
     Indication: LIVER TRANSPLANT
     Dosage: 100 MG, BID
     Route: 048
     Dates: start: 20060211
  2. MYFORTIC [Suspect]
     Indication: LIVER TRANSPLANT
     Dosage: 720 MG, BID
     Route: 048
     Dates: start: 20060321
  3. HYDROCHLOROTHIAZIDE [Suspect]
     Dosage: 25 MG, QD
     Dates: end: 20070129
  4. ASPIRIN [Concomitant]
  5. AVAPRO [Concomitant]
  6. LAMIVUDINE [Concomitant]
  7. FERROUS GLUCONATE [Concomitant]
  8. VITAMIN CAP [Concomitant]

REACTIONS (12)
  - ANAEMIA [None]
  - BLOOD CREATININE INCREASED [None]
  - CONCOMITANT DISEASE PROGRESSION [None]
  - DYSPNOEA EXERTIONAL [None]
  - HAEMOGLOBIN DECREASED [None]
  - HEPATIC ENZYME INCREASED [None]
  - HEPATIC FIBROSIS [None]
  - HEPATIC INFILTRATION EOSINOPHILIC [None]
  - HEPATITIS C [None]
  - HEPATOTOXICITY [None]
  - JAUNDICE [None]
  - RENAL FAILURE ACUTE [None]
